FAERS Safety Report 25111687 (Version 1)
Quarter: 2025Q1

REPORT INFORMATION
  Report Type: Spontaneous
  Country: US (occurrence: US)
  Receive Date: 20250324
  Receipt Date: 20250324
  Transmission Date: 20250409
  Serious: No
  Sender: TRAVERE THERAPEUTICS
  Company Number: US-TRAVERE-2025TVT00252

PATIENT
  Age: 59 Year
  Sex: Male

DRUGS (2)
  1. FILSPARI [Suspect]
     Active Substance: SPARSENTAN
     Indication: IgA nephropathy
     Dosage: FOR 14 DAYS
     Route: 048
  2. FILSPARI [Suspect]
     Active Substance: SPARSENTAN
     Route: 048

REACTIONS (2)
  - Weight increased [Unknown]
  - Oedema [Unknown]

NARRATIVE: CASE EVENT DATE: 20250101
